FAERS Safety Report 5419401-8 (Version None)
Quarter: 2007Q3

REPORT INFORMATION
  Report Type: 
  Country: None (occurrence: None)
  Receive Date: 20070820
  Receipt Date: 20070810
  Transmission Date: 20080115
  Serious: Yes (Hospitalization, Other)
  Sender: FDA-Public Use
  Company Number: A0669480A

PATIENT
  Sex: Female

DRUGS (3)
  1. LAMICTAL [Suspect]
     Indication: BIPOLAR DISORDER
     Dosage: 200MG PER DAY
     Route: 048
     Dates: start: 20060101, end: 20070601
  2. LEXAPRO [Concomitant]
  3. AMBIEN [Concomitant]

REACTIONS (7)
  - ABSCESS LIMB [None]
  - ANAEMIA MACROCYTIC [None]
  - CELLULITIS [None]
  - CLOSTRIDIAL INFECTION [None]
  - HAEMATOMA [None]
  - MACROCYTOSIS [None]
  - SUBCUTANEOUS ABSCESS [None]
